FAERS Safety Report 9778400 (Version 2)
Quarter: 2013Q4

REPORT INFORMATION
  Report Type: Spontaneous
  Country: BR (occurrence: BR)
  Receive Date: 20131223
  Receipt Date: 20131223
  Transmission Date: 20140711
  Serious: Yes (Other)
  Sender: FDA-Public Use
  Company Number: BR-JNJFOC-20130209980

PATIENT
  Age: 25 Year
  Sex: Female
  Weight: 104 kg

DRUGS (13)
  1. REMICADE [Suspect]
     Indication: RHEUMATOID ARTHRITIS
     Route: 042
     Dates: start: 201301
  2. REMICADE [Suspect]
     Indication: RHEUMATOID ARTHRITIS
     Route: 042
     Dates: start: 20131216
  3. REMICADE [Suspect]
     Indication: RHEUMATOID ARTHRITIS
     Route: 042
     Dates: start: 20130208
  4. REMICADE [Suspect]
     Indication: RHEUMATOID ARTHRITIS
     Route: 042
     Dates: start: 20130222
  5. TYLENOL [Concomitant]
     Indication: PAIN
     Route: 065
     Dates: start: 2011
  6. ARAVA [Concomitant]
     Indication: RHEUMATOID ARTHRITIS
     Route: 065
     Dates: start: 2011
  7. PURAN T4 [Concomitant]
     Indication: HYPOTHYROIDISM
     Route: 065
     Dates: start: 2008
  8. SERTRALINE [Concomitant]
     Indication: DEPRESSION
     Route: 065
     Dates: start: 201206
  9. FOLIC ACID [Concomitant]
     Indication: OSTEOPOROSIS
     Route: 065
     Dates: start: 201209
  10. VITAMIN D [Concomitant]
     Indication: OSTEOPOROSIS
     Route: 065
     Dates: start: 201209
  11. PREDNISOLONE [Concomitant]
     Indication: RHEUMATOID ARTHRITIS
     Route: 065
     Dates: start: 2011
  12. CALCIUM [Concomitant]
     Indication: OSTEOPOROSIS
     Route: 065
     Dates: start: 201209
  13. PREDNISOLONE [Concomitant]
     Indication: RHEUMATOID ARTHRITIS
     Route: 065
     Dates: start: 2011

REACTIONS (10)
  - Yellow skin [Not Recovered/Not Resolved]
  - Arrhythmia [Not Recovered/Not Resolved]
  - Paraesthesia [Not Recovered/Not Resolved]
  - Headache [Not Recovered/Not Resolved]
  - Malaise [Not Recovered/Not Resolved]
  - Nausea [Not Recovered/Not Resolved]
  - Dry mouth [Not Recovered/Not Resolved]
  - Blood pressure fluctuation [Not Recovered/Not Resolved]
  - Weight decreased [Unknown]
  - Diarrhoea [Not Recovered/Not Resolved]
